FAERS Safety Report 10166820 (Version 1)
Quarter: 2014Q2

REPORT INFORMATION
  Report Type: Spontaneous
  Country: US (occurrence: US)
  Receive Date: 20140512
  Receipt Date: 20140512
  Transmission Date: 20141212
  Serious: No
  Sender: FDA-Public Use
  Company Number: US-BAYER-2014-068388

PATIENT
  Age: 40 Year
  Sex: Female

DRUGS (1)
  1. RID 1-2-3 SYSTEM [Suspect]
     Indication: LICE INFESTATION
     Dosage: 1 DOSE
     Route: 061
     Dates: start: 20140426

REACTIONS (1)
  - Intentional product misuse [None]
